FAERS Safety Report 8060730-X (Version None)
Quarter: 2012Q1

REPORT INFORMATION
  Report Type: 
  Country: None (occurrence: None)
  Receive Date: 20120120
  Receipt Date: 20120106
  Transmission Date: 20120608
  Serious: Yes (Hospitalization)
  Sender: FDA-Public Use
  Company Number: AT-WATSON-2012-00385

PATIENT
  Age: 39 Year
  Sex: Female

DRUGS (4)
  1. RISPERIDONE [Suspect]
     Indication: PSYCHOTIC DISORDER
     Dosage: UNK
  2. VENLAFAXINE HYDROCHLORIDE [Suspect]
     Indication: DEPRESSED MOOD
     Dosage: UNK
  3. ARIPIPRAZOLE [Suspect]
     Indication: PSYCHOTIC DISORDER
     Dosage: UNK
  4. HALOPERIDOL [Suspect]
     Indication: PSYCHOTIC DISORDER
     Dosage: UNK

REACTIONS (4)
  - GALACTORRHOEA [None]
  - DRUG LEVEL INCREASED [None]
  - PSYCHOTIC DISORDER [None]
  - DRUG INEFFECTIVE [None]
